FAERS Safety Report 21010158 (Version 3)
Quarter: 2022Q3

REPORT INFORMATION
  Report Type: Spontaneous
  Country: US (occurrence: US)
  Receive Date: 20220627
  Receipt Date: 20220719
  Transmission Date: 20221027
  Serious: Yes (Other)
  Sender: FDA-Public Use
  Company Number: US-PFIZER INC-202200888979

PATIENT
  Age: 57 Year
  Sex: Female
  Weight: 60.771 kg

DRUGS (4)
  1. PAXLOVID [Suspect]
     Active Substance: NIRMATRELVIR\RITONAVIR
     Indication: COVID-19 treatment
     Dosage: UNK
     Route: 048
     Dates: start: 20220616, end: 20220622
  2. ZOLOFT [Concomitant]
     Active Substance: SERTRALINE HYDROCHLORIDE
     Dosage: UNK
     Route: 048
     Dates: start: 2001
  3. BUSPIRONE HCL [Concomitant]
     Active Substance: BUSPIRONE HYDROCHLORIDE
     Dosage: UNK
     Route: 048
     Dates: start: 2005
  4. DUPIXENT [Concomitant]
     Active Substance: DUPILUMAB
     Dosage: UNK
     Dates: start: 2019

REACTIONS (24)
  - Haemolysis [Unknown]
  - Thirst [Recovered/Resolved]
  - Pollakiuria [Recovered/Resolved]
  - Weight decreased [Recovered/Resolved]
  - Dysgeusia [Recovered/Resolved]
  - Ageusia [Recovered/Resolved]
  - Night sweats [Recovered/Resolved]
  - Restless legs syndrome [Recovered/Resolved]
  - Poor quality sleep [Recovered/Resolved]
  - Flatulence [Not Recovered/Not Resolved]
  - Crying [Recovering/Resolving]
  - Sleep disorder [Recovered/Resolved]
  - Sleep terror [Recovered/Resolved]
  - Nightmare [Recovered/Resolved]
  - Tinnitus [Recovered/Resolved]
  - Feeling abnormal [Recovered/Resolved]
  - Headache [Recovered/Resolved]
  - Decreased appetite [Recovered/Resolved]
  - Ageusia [Recovering/Resolving]
  - Asthenia [Recovering/Resolving]
  - Irritable bowel syndrome [Unknown]
  - Inflammation [Unknown]
  - Fatigue [Recovering/Resolving]
  - Product use issue [Unknown]

NARRATIVE: CASE EVENT DATE: 20220617
